FAERS Safety Report 7343387-2 (Version None)
Quarter: 2011Q1

REPORT INFORMATION
  Report Type: 
  Country: None (occurrence: None)
  Receive Date: 20110228
  Receipt Date: 20110223
  Transmission Date: 20110831
  Serious: Yes (Hospitalization)
  Sender: FDA-Public Use
  Company Number: 2010SP059141

PATIENT
  Age: 3 Day
  Sex: Female
  Weight: 2.34 kg

DRUGS (1)
  1. ESLAX (ROCURONIUM BROMIDE /01245702/ [Suspect]
     Indication: DRUG EXPOSURE DURING PREGNANCY
     Dosage: TRPL
     Route: 064

REACTIONS (3)
  - APGAR SCORE LOW [None]
  - CAESAREAN SECTION [None]
  - RHABDOMYOLYSIS [None]
